FAERS Safety Report 17052691 (Version 1)
Quarter: 2019Q4

REPORT INFORMATION
  Report Type: Spontaneous
  Country: US (occurrence: US)
  Receive Date: 20191021
  Receipt Date: 20191021
  Transmission Date: 20200122
  Serious: Yes (Other)
  Sender: FDA-Public Use
  Company Number: None

PATIENT
  Age: 39 Year
  Sex: Male
  Weight: 102.33 kg

DRUGS (1)
  1. INSULIN LISPRO 100/U/ML (GENERIC) [Suspect]
     Active Substance: INSULIN LISPRO
     Indication: DIABETES MELLITUS
     Dosage: ?          OTHER DOSE:SLIDING SCALE 3X DAILY SUBQ?
     Route: 058
     Dates: start: 20190930, end: 20191002

REACTIONS (7)
  - Somnolence [None]
  - Confusional state [None]
  - Anxiety [None]
  - Irritability [None]
  - Blood glucose increased [None]
  - Depression [None]
  - Crying [None]

NARRATIVE: CASE EVENT DATE: 20191002
